FAERS Safety Report 6669339-3 (Version None)
Quarter: 2010Q2

REPORT INFORMATION
  Report Type: 
  Country: None (occurrence: None)
  Receive Date: 20100406
  Receipt Date: 20100402
  Transmission Date: 20101027
  Serious: Yes (Hospitalization)
  Sender: FDA-Public Use
  Company Number: A0801487A

PATIENT
  Age: 61 Year
  Sex: Female

DRUGS (14)
  1. AVANDIA [Suspect]
     Indication: DIABETES MELLITUS
     Dosage: 4MG TWICE PER DAY
     Route: 048
     Dates: start: 20000101
  2. ATENOLOL [Concomitant]
  3. IMDUR [Concomitant]
  4. PREMPRO [Concomitant]
  5. PRILOSEC [Concomitant]
  6. NORVASC [Concomitant]
  7. XANAX [Concomitant]
  8. LIPITOR [Concomitant]
  9. PRAVACHOL [Concomitant]
  10. AVAPRO [Concomitant]
  11. PREVACID [Concomitant]
  12. GLUCOVANCE [Concomitant]
  13. GLYBURIDE [Concomitant]
  14. FOLTX [Concomitant]

REACTIONS (2)
  - CORONARY ARTERY DISEASE [None]
  - MYOCARDIAL INFARCTION [None]
